FAERS Safety Report 22919001 (Version 4)
Quarter: 2023Q4

REPORT INFORMATION
  Report Type: Report from Study
  Country: KR (occurrence: KR)
  Receive Date: 20230907
  Receipt Date: 20231020
  Transmission Date: 20240110
  Serious: Yes (Death, Hospitalization)
  Sender: FDA-Public Use
  Company Number: KR-GILEAD-2023-0641563

PATIENT
  Sex: Male
  Weight: 86 kg

DRUGS (73)
  1. SACITUZUMAB GOVITECAN-HZIY [Suspect]
     Active Substance: SACITUZUMAB GOVITECAN-HZIY
     Indication: Lung neoplasm malignant
     Dosage: 865 MG
     Route: 042
     Dates: start: 20230818, end: 20230818
  2. SACITUZUMAB GOVITECAN-HZIY [Suspect]
     Active Substance: SACITUZUMAB GOVITECAN-HZIY
     Dosage: 865 MG
     Route: 042
     Dates: start: 20230822, end: 20230822
  3. NORVASC [Concomitant]
     Active Substance: AMLODIPINE BESYLATE
     Indication: Hypertension
     Route: 048
     Dates: start: 2002
  4. NORVASC [Concomitant]
     Active Substance: AMLODIPINE BESYLATE
     Route: 048
     Dates: start: 2002, end: 20230828
  5. VIVACOR [CARVEDILOL] [Concomitant]
     Indication: Dyslipidaemia
     Route: 048
     Dates: start: 2002
  6. ATIVAN [Concomitant]
     Active Substance: LORAZEPAM
     Indication: Insomnia
     Route: 048
     Dates: start: 202302
  7. ATIVAN [Concomitant]
     Active Substance: LORAZEPAM
     Indication: Prophylaxis
     Route: 048
     Dates: start: 202302, end: 20230828
  8. ATIVAN [Concomitant]
     Active Substance: LORAZEPAM
     Route: 030
     Dates: start: 20230828, end: 20230828
  9. FLUOXETINE [Concomitant]
     Active Substance: FLUOXETINE HYDROCHLORIDE
     Indication: Insomnia
     Route: 048
     Dates: start: 202302
  10. FLUOXETINE [Concomitant]
     Active Substance: FLUOXETINE HYDROCHLORIDE
     Route: 048
     Dates: start: 202302, end: 20230828
  11. LUNAPAM [Concomitant]
     Indication: Insomnia
     Route: 048
     Dates: start: 202302
  12. LUNAPAM [Concomitant]
     Route: 048
     Dates: start: 202302, end: 20230828
  13. MIRTAPIN [Concomitant]
     Indication: Insomnia
     Route: 048
     Dates: start: 202302
  14. MIRTAPIN [Concomitant]
     Route: 048
     Dates: start: 202302, end: 20230828
  15. TRAZODONE HYDROCHLORIDE [Concomitant]
     Active Substance: TRAZODONE HYDROCHLORIDE
     Indication: Insomnia
     Route: 048
     Dates: start: 202302
  16. TRAZODONE HYDROCHLORIDE [Concomitant]
     Active Substance: TRAZODONE HYDROCHLORIDE
     Route: 048
     Dates: start: 202302, end: 20230828
  17. DULACKHAN EASY [Concomitant]
     Indication: Prophylaxis
     Route: 048
     Dates: start: 20230421
  18. FOLIC ACID [Concomitant]
     Active Substance: FOLIC ACID
     Indication: Prophylaxis
     Route: 048
     Dates: start: 20230421, end: 20230801
  19. MAGNESIUM HYDROXIDE [Concomitant]
     Active Substance: MAGNESIUM HYDROXIDE
     Indication: Prophylaxis
     Route: 048
     Dates: start: 20230421
  20. TANTUM [BENZYDAMINE HYDROCHLORIDE] [Concomitant]
     Indication: Prophylaxis
     Route: 050
     Dates: start: 20230421
  21. LYRICA [Concomitant]
     Active Substance: PREGABALIN
     Indication: Tumour pain
     Route: 048
     Dates: start: 20230510
  22. LYRICA [Concomitant]
     Active Substance: PREGABALIN
     Route: 048
     Dates: start: 20230510, end: 20230828
  23. HARNAL [Concomitant]
     Active Substance: TAMSULOSIN HYDROCHLORIDE
     Indication: Dysuria
     Route: 048
     Dates: start: 20230621
  24. HARNAL [Concomitant]
     Active Substance: TAMSULOSIN HYDROCHLORIDE
     Route: 048
     Dates: start: 20230621, end: 20230828
  25. NALOXONE HYDROCHLORIDE\OXYCODONE HYDROCHLORIDE [Concomitant]
     Active Substance: NALOXONE HYDROCHLORIDE\OXYCODONE HYDROCHLORIDE
     Route: 048
     Dates: start: 20230621
  26. EXOPERIN [Concomitant]
     Indication: Tumour pain
     Route: 048
     Dates: start: 20230712
  27. EXOPERIN [Concomitant]
     Route: 048
     Dates: start: 20230712, end: 20230828
  28. LIDOCAINE [Concomitant]
     Active Substance: LIDOCAINE
     Indication: Prophylaxis
     Route: 055
     Dates: start: 20230727, end: 20230727
  29. AUGMENTIN [Concomitant]
     Active Substance: AMOXICILLIN\CLAVULANATE POTASSIUM
     Indication: Prophylaxis
     Route: 048
     Dates: start: 20230727, end: 20230802
  30. FENTANYL [Concomitant]
     Active Substance: FENTANYL\FENTANYL CITRATE
     Indication: Prophylaxis
     Route: 042
     Dates: start: 20230727, end: 20230727
  31. FOMS TNA PERI [Concomitant]
     Indication: Prophylaxis
     Route: 042
     Dates: start: 20230727, end: 20230727
  32. FURTMAN [Concomitant]
     Indication: Prophylaxis
     Route: 042
     Dates: start: 20230727, end: 20230727
  33. MIDAZOLAM [Concomitant]
     Active Substance: MIDAZOLAM
     Indication: Prophylaxis
     Route: 042
     Dates: start: 20230727, end: 20230727
  34. MUCOSTA SR [Concomitant]
     Indication: Prophylaxis
     Route: 048
     Dates: start: 20230727, end: 20230802
  35. VITAMINS [Concomitant]
     Active Substance: VITAMINS
     Indication: Prophylaxis
     Route: 042
     Dates: start: 20230727, end: 20230727
  36. PANTOPRAZOLE SODIUM [Concomitant]
     Active Substance: PANTOPRAZOLE SODIUM
     Indication: Prophylaxis
     Route: 042
     Dates: start: 20230727, end: 20230728
  37. CEFTRIAXONE SODIUM [Concomitant]
     Active Substance: CEFTRIAXONE SODIUM
     Indication: Prophylaxis
     Route: 042
     Dates: start: 20230727, end: 20230728
  38. TEGOPRAZAN [Concomitant]
     Active Substance: TEGOPRAZAN
     Indication: Prophylaxis
     Route: 048
     Dates: start: 20230729, end: 20230804
  39. FEROBA YOU SR [Concomitant]
     Indication: Anaemia
     Route: 048
     Dates: start: 20230802
  40. MEGACE [Concomitant]
     Active Substance: MEGESTROL ACETATE
     Indication: Prophylaxis
     Route: 048
     Dates: start: 20230802
  41. PENIRAMIN [Concomitant]
     Indication: Prophylaxis
     Route: 042
     Dates: start: 20230802, end: 20230802
  42. TYLENOL [Concomitant]
     Active Substance: ACETAMINOPHEN
     Indication: Tumour pain
     Route: 048
     Dates: start: 20230822
  43. LOPAINE [Concomitant]
     Indication: Prophylaxis
     Route: 048
     Dates: start: 20230825
  44. ACETPHEN PREMIX [Concomitant]
     Indication: Febrile neutropenia
     Route: 042
     Dates: start: 20230827, end: 20230827
  45. CALCIUM CHLORATE [Concomitant]
     Indication: Prophylaxis
     Route: 042
     Dates: start: 20230827, end: 20230829
  46. HYDROCORTISONE SODIUM SUCCINATE [Concomitant]
     Active Substance: HYDROCORTISONE SODIUM SUCCINATE
     Indication: Prophylaxis
     Route: 042
     Dates: start: 20230827, end: 20230831
  47. NORPIN [NOREPINEPHRINE BITARTRATE MONOHYDRATE] [Concomitant]
     Indication: Prophylaxis
     Route: 042
     Dates: start: 20230827, end: 20230830
  48. PROFA [Concomitant]
     Indication: Febrile neutropenia
     Route: 042
     Dates: start: 20230827
  49. TAZOPERAN [Concomitant]
     Indication: Prophylaxis
     Route: 042
     Dates: start: 20230827
  50. VASOPRESSIN [Concomitant]
     Active Substance: VASOPRESSIN
     Indication: Prophylaxis
     Route: 042
     Dates: start: 20230827, end: 20230828
  51. IPRATROPIUM BROMIDE [Concomitant]
     Active Substance: IPRATROPIUM BROMIDE\IPRATROPIUM BROMIDE ANHYDROUS
     Indication: Prophylaxis
     Route: 055
     Dates: start: 20230828, end: 20230828
  52. ENOXAPARIN SODIUM [Concomitant]
     Active Substance: ENOXAPARIN SODIUM
     Indication: Prophylaxis
     Route: 058
     Dates: start: 20230828, end: 20230830
  53. COMBIFLEX PERI [AMINO ACIDS NOS;ELECTROLYTES NOS;GLUCOSE] [Concomitant]
     Indication: Prophylaxis
     Route: 042
     Dates: start: 20230828, end: 20230828
  54. CONBLOC [Concomitant]
     Indication: Atrial fibrillation
     Route: 048
     Dates: start: 20230828
  55. SODIUM CHLORIDE [Concomitant]
     Active Substance: SODIUM CHLORIDE
     Indication: Prophylaxis
     Route: 042
     Dates: start: 20230828, end: 20230901
  56. LASIX [Concomitant]
     Active Substance: FUROSEMIDE
     Indication: Prophylaxis
     Route: 042
     Dates: start: 20230828, end: 20230901
  57. MUCOMYST [Concomitant]
     Active Substance: ACETYLCYSTEINE
     Indication: Prophylaxis
     Route: 055
     Dates: start: 20230828
  58. NEXIUM I.V. [Concomitant]
     Active Substance: ESOMEPRAZOLE SODIUM
     Indication: Prophylaxis
     Route: 042
     Dates: start: 20230828, end: 20230831
  59. PERIDOL [HALOPERIDOL] [Concomitant]
     Indication: Prophylaxis
     Route: 030
     Dates: start: 20230828, end: 20230828
  60. PHOSTEN [Concomitant]
     Indication: Prophylaxis
     Route: 042
     Dates: start: 20230828, end: 20230901
  61. SODIUM BICARBONATE [Concomitant]
     Active Substance: SODIUM BICARBONATE
     Indication: Prophylaxis
     Route: 042
     Dates: start: 20230828, end: 20230829
  62. TEICONIN [Concomitant]
     Indication: Prophylaxis
     Route: 042
     Dates: start: 20230828, end: 20230828
  63. ABILIFY [Concomitant]
     Active Substance: ARIPIPRAZOLE
     Indication: Prophylaxis
     Route: 048
     Dates: start: 20230829
  64. COTRIM [Concomitant]
     Active Substance: SULFAMETHOXAZOLE\TRIMETHOPRIM
     Indication: Prophylaxis
     Route: 042
     Dates: start: 20230829
  65. ORNITHINE ASPARTATE [Concomitant]
     Active Substance: ORNITHINE ASPARTATE
     Indication: Prophylaxis
     Route: 042
     Dates: start: 20230829
  66. MORPHINE SULFATE [Concomitant]
     Active Substance: MORPHINE SULFATE
     Indication: Prophylaxis
     Route: 042
     Dates: start: 20230829
  67. TAPOCIN [Concomitant]
     Indication: Prophylaxis
     Route: 042
     Dates: start: 20230829
  68. TRAMADOL HYDROCHLORIDE [Concomitant]
     Active Substance: TRAMADOL HYDROCHLORIDE
     Indication: Tumour pain
     Route: 042
     Dates: start: 20230829
  69. WINUF [Concomitant]
     Indication: Prophylaxis
     Route: 042
     Dates: start: 20230829
  70. ALBUMIN HUMAN [Concomitant]
     Active Substance: ALBUMIN HUMAN
     Indication: Prophylaxis
     Route: 042
     Dates: start: 20230830
  71. PLATELETS [Concomitant]
     Active Substance: HUMAN PLATELET, ALLOGENIC
     Indication: Platelet count decreased
     Route: 042
     Dates: start: 20230830, end: 20230830
  72. GASTER [Concomitant]
     Active Substance: FAMOTIDINE
     Indication: Prophylaxis
     Route: 042
     Dates: start: 20230901
  73. PRIATIL [Concomitant]
     Indication: Prophylaxis
     Route: 048
     Dates: start: 20230901

REACTIONS (2)
  - Klebsiella sepsis [Fatal]
  - Febrile neutropenia [Recovering/Resolving]

NARRATIVE: CASE EVENT DATE: 20230825
